FAERS Safety Report 7199743-9 (Version None)
Quarter: 2010Q4

REPORT INFORMATION
  Report Type: 
  Country: None (occurrence: None)
  Receive Date: 20101228
  Receipt Date: 20101222
  Transmission Date: 20110411
  Serious: Yes (Other)
  Sender: FDA-Public Use
  Company Number: US-ROCHE-738100

PATIENT
  Sex: Male

DRUGS (3)
  1. PEGINTERFERON ALFA-2A [Suspect]
     Indication: HEPATITIS C
     Dosage: FORM: PREFILLED SYRINGE
     Route: 065
     Dates: start: 20100905, end: 20101010
  2. RIBAVIRIN [Suspect]
     Indication: HEPATITIS C
     Route: 065
     Dates: start: 20100905, end: 20101010
  3. LEVOTHYROXINE [Concomitant]
     Indication: HYPERTHYROIDISM

REACTIONS (4)
  - ANAEMIA [None]
  - DECREASED APPETITE [None]
  - HYPERTENSION [None]
  - THROMBOSIS [None]
